FAERS Safety Report 5685228-5 (Version None)
Quarter: 2008Q1

REPORT INFORMATION
  Report Type: 
  Country: None (occurrence: None)
  Receive Date: 20080328
  Receipt Date: 20080318
  Transmission Date: 20080703
  Serious: Yes (Other)
  Sender: FDA-Public Use
  Company Number: HU-ELI_LILLY_AND_COMPANY-HU200803005854

PATIENT
  Sex: Female

DRUGS (7)
  1. DULOXETINE HYDROCHLORIDE [Suspect]
     Indication: DEPRESSION
     Dosage: 60 MG, DAILY (1/D)
     Route: 064
     Dates: end: 20071208
  2. LAMOTRIGINE [Concomitant]
     Indication: EPILEPSY
     Dosage: UNK, UNKNOWN
     Route: 064
     Dates: end: 20071208
  3. GABAPENTIN [Concomitant]
     Indication: EPILEPSY
     Dosage: UNK, UNKNOWN
     Route: 064
     Dates: end: 20071208
  4. MIRTAZAPINE [Concomitant]
     Indication: DEPRESSION
     Dosage: UNK, UNKNOWN
     Route: 064
     Dates: end: 20081208
  5. ALPRAZOLAM [Concomitant]
     Indication: PANIC DISORDER
     Dosage: UNK, UNKNOWN
     Route: 064
     Dates: end: 20071208
  6. QUETIAPINE FUMARATE [Concomitant]
     Indication: ANXIETY
     Dosage: UNK, UNKNOWN
     Route: 064
     Dates: end: 20071208
  7. SERTRALINE [Concomitant]
     Dosage: UNK, UNKNOWN
     Route: 064
     Dates: end: 20071208

REACTIONS (3)
  - DRUG EXPOSURE DURING PREGNANCY [None]
  - FOETAL DISTRESS SYNDROME [None]
  - NEONATAL HYPOXIA [None]
